FAERS Safety Report 8197498-2 (Version None)
Quarter: 2012Q1

REPORT INFORMATION
  Report Type: 
  Country: None (occurrence: None)
  Receive Date: 20120309
  Receipt Date: 20120227
  Transmission Date: 20120608
  Serious: Yes (Death, Hospitalization, Other)
  Sender: FDA-Public Use
  Company Number: FR-ROCHE-730102

PATIENT

DRUGS (1)
  1. MABTHERA [Suspect]
     Indication: RHEUMATOID ARTHRITIS
     Dosage: INFUSION
     Route: 065

REACTIONS (16)
  - EYE INFECTION [None]
  - BRONCHOPNEUMONIA [None]
  - RHINITIS [None]
  - PHARYNGITIS [None]
  - SKIN CANCER [None]
  - SEPSIS [None]
  - TRANSITIONAL CELL CARCINOMA [None]
  - ARTHRITIS INFECTIVE [None]
  - NEOPLASM MALIGNANT [None]
  - INFECTION [None]
  - ARTHRITIS FUNGAL [None]
  - RECTAL CANCER [None]
  - SKIN INFECTION [None]
  - URINARY TRACT INFECTION [None]
  - GASTROINTESTINAL INFECTION [None]
  - HYPOGLOBULINAEMIA [None]
